FAERS Safety Report 8933762 (Version 1)
Quarter: 2012Q4

REPORT INFORMATION
  Report Type: 
  Country: CN (occurrence: CN)
  Receive Date: 20121129
  Receipt Date: 20121129
  Transmission Date: 20130627
  Serious: Yes (Hospitalization)
  Sender: FDA-Public Use
  Company Number: CN-ELI_LILLY_AND_COMPANY-CN201211003996

PATIENT
  Age: 48 Year
  Sex: Male

DRUGS (13)
  1. BYETTA [Suspect]
     Indication: TYPE 2 DIABETES MELLITUS
     Dosage: 5 ug, UNK
     Route: 058
     Dates: start: 20121102, end: 20121107
  2. INSULIN ASPART [Concomitant]
     Dosage: 34 u, qd
     Dates: end: 20121102
  3. INSULIN DETEMIR [Concomitant]
     Dosage: 30 u, each evening
     Route: 058
     Dates: end: 20121102
  4. SITAGLIPTIN [Concomitant]
     Dosage: 100 mg, qd
     Route: 048
     Dates: end: 20121104
  5. MECOBALAMIN [Concomitant]
     Dosage: 500 ug, qd
     Route: 042
     Dates: end: 20121104
  6. LOSARTAN POTASSIUM [Concomitant]
     Dosage: 50 mg, qd
     Route: 048
     Dates: end: 20121104
  7. LIGUSTRAZINE [Concomitant]
     Dosage: 80 mg, qd
     Route: 042
     Dates: end: 20121104
  8. CALCIUM DOBESILATE [Concomitant]
     Dosage: 0.5 g, tid
     Route: 048
  9. ATORVASTATIN [Concomitant]
     Dosage: 20 mg, qd
     Route: 048
  10. ASPIRIN [Concomitant]
     Dosage: 100 mg, qd
     Route: 048
  11. VITAMIN B1 [Concomitant]
     Dosage: 10 mg, tid
     Route: 048
  12. MECOBALAMIN [Concomitant]
     Dosage: 500 ug, tid
     Route: 048
  13. EPALRESTAT [Concomitant]
     Dosage: 50 mg, tid
     Route: 048

REACTIONS (4)
  - Nasopharyngitis [Unknown]
  - Drug hypersensitivity [Recovered/Resolved]
  - Dizziness [Unknown]
  - Nausea [Unknown]
